FAERS Safety Report 20993324 (Version 1)
Quarter: 2022Q2

REPORT INFORMATION
  Report Type: Spontaneous
  Country: US (occurrence: US)
  Receive Date: 20220622
  Receipt Date: 20220622
  Transmission Date: 20220721
  Serious: Yes (Other)
  Sender: FDA-Public Use
  Company Number: US-GLAXOSMITHKLINE-US2022AMR092938

PATIENT

DRUGS (2)
  1. FLOLAN [Suspect]
     Active Substance: EPOPROSTENOL SODIUM
     Indication: Pulmonary arterial hypertension
     Dosage: 100 NG/KG/MIN, CO, 105000 NG/ML, 82 ML/DAY
     Dates: start: 20210303
  2. GLYCINE\MANNITOL\SODIUM CHLORIDE [Suspect]
     Active Substance: GLYCINE\MANNITOL\SODIUM CHLORIDE
     Indication: Vehicle solution use
     Dosage: UNK
     Dates: start: 20210303

REACTIONS (7)
  - Sickle cell anaemia with crisis [Unknown]
  - Loss of consciousness [Unknown]
  - Dyspnoea [Unknown]
  - Pain in extremity [Unknown]
  - Nausea [Unknown]
  - Diarrhoea [Unknown]
  - Fluid replacement [Unknown]

NARRATIVE: CASE EVENT DATE: 20220612
